FAERS Safety Report 11245474 (Version 1)
Quarter: 2015Q3

REPORT INFORMATION
  Report Type: Spontaneous
  Country: CA (occurrence: CA)
  Receive Date: 20150707
  Receipt Date: 20150707
  Transmission Date: 20151125
  Serious: Yes (Death)
  Sender: FDA-Public Use
  Company Number: CA-HOSPIRA-2708057

PATIENT
  Age: 72 Year
  Sex: Male

DRUGS (5)
  1. HEPARIN SODIUM. [Concomitant]
     Active Substance: HEPARIN SODIUM
     Indication: PRODUCT USED FOR UNKNOWN INDICATION
     Dosage: NOT REPORTED
  2. SODIUM CHLORIDE. [Suspect]
     Active Substance: SODIUM CHLORIDE
     Indication: HAEMODIALYSIS
     Dosage: NOT REPORTED
     Route: 065
  3. POTASSIUM CHLORIDE. [Suspect]
     Active Substance: POTASSIUM CHLORIDE
     Indication: HAEMODIALYSIS
     Dosage: NOT REPORTED
     Route: 065
  4. SODIUM HYDROGEN CARBONATE [Suspect]
     Active Substance: SODIUM BICARBONATE
     Indication: HAEMODIALYSIS
     Dosage: NOT REPORTED
     Route: 042
  5. NATURALYTE [Suspect]
     Active Substance: ACETIC ACID\SODIUM ACETATE
     Indication: HAEMODIALYSIS
     Dosage: NOT REPORTED
     Route: 042

REACTIONS (1)
  - Post procedural infection [Fatal]
